FAERS Safety Report 8983729 (Version 3)
Quarter: 2013Q1

REPORT INFORMATION
  Report Type: Spontaneous
  Country: JP (occurrence: JP)
  Receive Date: 20121224
  Receipt Date: 20130212
  Transmission Date: 20140127
  Serious: Yes (Hospitalization)
  Sender: FDA-Public Use
  Company Number: JP-ROCHE-1169284

PATIENT
  Age: 74 Year
  Sex: Male
  Weight: 80 kg

DRUGS (6)
  1. AVASTIN [Suspect]
     Indication: RECTAL CANCER RECURRENT
     Route: 041
     Dates: start: 20121126, end: 20121126
  2. XELODA [Suspect]
     Indication: RECTAL CANCER RECURRENT
     Dosage: 2 WEEKS ADMINISTRATION FOLLOWED BY 1 WEEK REST
     Route: 048
     Dates: start: 20121126, end: 20121209
  3. ELPLAT [Suspect]
     Indication: RECTAL CANCER RECURRENT
     Route: 041
     Dates: start: 20121126, end: 20121126
  4. MICARDIS [Concomitant]
     Indication: HYPERTENSION
     Route: 048
     Dates: start: 2011
  5. AZULENE SULFONATE SODIUM [Concomitant]
     Indication: GASTRITIS
     Route: 048
     Dates: start: 2011
  6. GASTER D [Concomitant]
     Indication: GASTRITIS
     Route: 048
     Dates: start: 2011

REACTIONS (4)
  - Rhabdomyolysis [Recovered/Resolved]
  - Pigmentation disorder [Not Recovered/Not Resolved]
  - Diarrhoea [Recovered/Resolved]
  - Oropharyngeal pain [Unknown]
